FAERS Safety Report 9775634 (Version 1)
Quarter: 2013Q4

REPORT INFORMATION
  Report Type: Spontaneous
  Country: IT (occurrence: IT)
  Receive Date: 20131220
  Receipt Date: 20131220
  Transmission Date: 20140711
  Serious: Yes (Hospitalization)
  Sender: FDA-Public Use
  Company Number: IT-TEVA-450855ISR

PATIENT
  Age: 79 Year
  Sex: Female
  Weight: 55 kg

DRUGS (4)
  1. GEMCITABINA [Suspect]
     Indication: LUNG CARCINOMA CELL TYPE UNSPECIFIED STAGE IV
     Dosage: 1000 MG/M2 DAILY; POWDER FOR SOLUTION FOR INFUSION
     Route: 042
     Dates: start: 20130726, end: 20131129
  2. TARGIN [Concomitant]
     Indication: PAIN
     Dosage: 2 DOSAGE FORMS DAILY;
     Route: 048
     Dates: start: 20130726, end: 20131129
  3. PLASIL 10 MG/2 ML [Concomitant]
     Indication: NAUSEA
     Dosage: 10 MILLIGRAM DAILY;
     Route: 042
     Dates: start: 20130726, end: 20131129
  4. SOLDESAM 0.2% [Concomitant]
     Indication: PAIN
     Dosage: 40 GTT DAILY;
     Route: 048
     Dates: start: 20130726, end: 20131129

REACTIONS (2)
  - Pulmonary embolism [Recovering/Resolving]
  - Deep vein thrombosis [Recovering/Resolving]
